FAERS Safety Report 8848038 (Version 1)
Quarter: 2012Q4

REPORT INFORMATION
  Report Type: 
  Country: AU (occurrence: AU)
  Receive Date: 20121018
  Receipt Date: 20121018
  Transmission Date: 20130627
  Serious: Yes (Other)
  Sender: FDA-Public Use
  Company Number: AU-ELI_LILLY_AND_COMPANY-AU201210002433

PATIENT
  Sex: Male

DRUGS (2)
  1. CIALIS [Suspect]
     Indication: ERECTILE DYSFUNCTION
     Dosage: 5 mg, qd
     Route: 048
  2. CIALIS [Suspect]
     Dosage: 20 mg, single

REACTIONS (2)
  - Prostate cancer [Unknown]
  - Drug ineffective [Unknown]
